FAERS Safety Report 9100433 (Version 1)
Quarter: 2013Q1

REPORT INFORMATION
  Report Type: Spontaneous
  Country: GR (occurrence: GR)
  Receive Date: 20130215
  Receipt Date: 20130215
  Transmission Date: 20140127
  Serious: Yes (Death)
  Sender: FDA-Public Use
  Company Number: GR-ROCHE-1190529

PATIENT
  Age: 37 Year
  Sex: Male

DRUGS (4)
  1. BEVACIZUMAB [Suspect]
     Indication: LUNG ADENOCARCINOMA STAGE IV
     Route: 065
  2. ERLOTINIB HYDROCHLORIDE [Suspect]
     Indication: LUNG ADENOCARCINOMA STAGE IV
     Route: 065
  3. CARBOPLATIN [Suspect]
     Indication: LUNG ADENOCARCINOMA STAGE IV
     Route: 065
  4. PACLITAXEL [Suspect]
     Indication: LUNG ADENOCARCINOMA STAGE IV
     Route: 065

REACTIONS (5)
  - Pneumothorax [Fatal]
  - Disease progression [Fatal]
  - Respiratory distress [Fatal]
  - Interstitial lung disease [Fatal]
  - Death [Fatal]
